FAERS Safety Report 13612748 (Version 1)
Quarter: 2017Q2

REPORT INFORMATION
  Report Type: Spontaneous
  Country: US (occurrence: US)
  Receive Date: 20170605
  Receipt Date: 20170605
  Transmission Date: 20170830
  Serious: No
  Sender: FDA-Public Use
  Company Number: US-ALLERGAN-1707464US

PATIENT
  Age: 58 Year
  Sex: Female

DRUGS (1)
  1. KYBELLA [Suspect]
     Active Substance: DEOXYCHOLIC ACID
     Indication: PRODUCT USED FOR UNKNOWN INDICATION
     Dosage: 0.4-0.5 CC, SINGLE
     Route: 058
     Dates: start: 20170224, end: 20170224

REACTIONS (4)
  - Injection site pain [Unknown]
  - Hyperaesthesia [Unknown]
  - Facial pain [Unknown]
  - Wrong drug administered [Unknown]

NARRATIVE: CASE EVENT DATE: 20170224
